FAERS Safety Report 5598268-1 (Version None)
Quarter: 2008Q1

REPORT INFORMATION
  Report Type: 
  Country: None (occurrence: None)
  Receive Date: 20080122
  Receipt Date: 20080116
  Transmission Date: 20080703
  Serious: Yes (Other)
  Sender: FDA-Public Use
  Company Number: US-GENENTECH-248225

PATIENT
  Sex: Female
  Weight: 56.689 kg

DRUGS (3)
  1. XOLAIR [Suspect]
     Indication: ASTHMA
     Dosage: UNK, 2/MONTH
     Route: 058
     Dates: start: 20040701, end: 20060801
  2. SINGULAIR [Concomitant]
     Indication: DRUG USE FOR UNKNOWN INDICATION
  3. TILADE [Concomitant]
     Indication: DRUG USE FOR UNKNOWN INDICATION

REACTIONS (5)
  - BRONCHIECTASIS [None]
  - LUNG NEOPLASM [None]
  - NO THERAPEUTIC RESPONSE [None]
  - PNEUMONIA [None]
  - THYROID NEOPLASM [None]
